FAERS Safety Report 7167920-9 (Version None)
Quarter: 2010Q4

REPORT INFORMATION
  Report Type: 
  Country: None (occurrence: None)
  Receive Date: 20101216
  Receipt Date: 20101202
  Transmission Date: 20110411
  Serious: No
  Sender: FDA-Public Use
  Company Number: US-PFIZER INC-2010163650

PATIENT
  Sex: Female

DRUGS (1)
  1. CAMPTOSAR [Suspect]

REACTIONS (1)
  - MUSCLE CONTRACTIONS INVOLUNTARY [None]
